FAERS Safety Report 7321789-8 (Version None)
Quarter: 2011Q1

REPORT INFORMATION
  Report Type: 
  Country: None (occurrence: None)
  Receive Date: 20110217
  Receipt Date: 20110201
  Transmission Date: 20110831
  Serious: Yes (Hospitalization, Disabling)
  Sender: FDA-Public Use
  Company Number: FK201100105

PATIENT
  Age: 28 Month
  Sex: Female

DRUGS (2)
  1. MESNA [Suspect]
     Indication: RHABDOMYOSARCOMA
     Dosage: INTRAVENOUS (NOT OTHERWISE SPECIFIED)
     Route: 042
  2. IFOSFAMIDE [Suspect]
     Indication: RHABDOMYOSARCOMA
     Dosage: INTRAVENOUS (NOT OTHERWISE SPECIFIED)
     Route: 042

REACTIONS (11)
  - NEUROTOXICITY [None]
  - MUSCLE TWITCHING [None]
  - IRRITABILITY [None]
  - ATAXIA [None]
  - AGITATION [None]
  - SCRATCH [None]
  - SELF INJURIOUS BEHAVIOUR [None]
  - HALLUCINATION, VISUAL [None]
  - ENCEPHALOPATHY [None]
  - AGGRESSION [None]
  - FEELING JITTERY [None]
